FAERS Safety Report 4865526-5 (Version None)
Quarter: 2005Q4

REPORT INFORMATION
  Report Type: 
  Country: None (occurrence: None)
  Receive Date: 20051220
  Receipt Date: 20051206
  Transmission Date: 20060501
  Serious: Yes (Hospitalization, Other)
  Sender: FDA-Public Use
  Company Number: 2005-US-00480

PATIENT
  Age: 47 Year
  Sex: Male
  Weight: 83.0083 kg

DRUGS (1)
  1. CLOZAPINE [Suspect]
     Indication: SCHIZOAFFECTIVE DISORDER
     Dosage: 625 MG QD, ORAL
     Route: 048
     Dates: start: 20050101

REACTIONS (9)
  - ANOREXIA [None]
  - CONVULSION [None]
  - INTENTIONAL OVERDOSE [None]
  - LEUKAEMIA [None]
  - MENTAL STATUS CHANGES [None]
  - PULMONARY EMBOLISM [None]
  - PYREXIA [None]
  - TREATMENT NONCOMPLIANCE [None]
  - WEIGHT DECREASED [None]
